FAERS Safety Report 14766475 (Version 3)
Quarter: 2018Q2

REPORT INFORMATION
  Report Type: Report from Study
  Country: NL (occurrence: NL)
  Receive Date: 20180416
  Receipt Date: 20180416
  Transmission Date: 20180711
  Serious: Yes (Hospitalization)
  Sender: FDA-Public Use
  Company Number: PHHY2018NL007835

PATIENT
  Age: 77 Year
  Sex: Female
  Weight: 76 kg

DRUGS (4)
  1. TELEBRIX (IOXITALAMATE MEGLUMINE\IOXITALAMATE SODIUM) [Suspect]
     Active Substance: MEGLUMINE IOXITHALAMATE\SODIUM IOXITHALAMATE
     Indication: ABDOMINAL PAIN
     Dosage: 50 MG, SINGLE
     Route: 048
     Dates: start: 20171231, end: 20171231
  2. GENERIC DICLOFENAC [Suspect]
     Active Substance: DICLOFENAC
     Indication: CONSTIPATION
     Dosage: 10 MG, PRN
     Route: 048
     Dates: start: 20171231
  3. TELEBRIX (IOXITALAMATE MEGLUMINE\IOXITALAMATE SODIUM) [Suspect]
     Active Substance: MEGLUMINE IOXITHALAMATE\SODIUM IOXITHALAMATE
     Indication: CONSTIPATION
  4. GENERIC DICLOFENAC [Suspect]
     Active Substance: DICLOFENAC
     Indication: ABDOMINAL PAIN

REACTIONS (1)
  - Abdominal pain [Recovered/Resolved]

NARRATIVE: CASE EVENT DATE: 20171219
